FAERS Safety Report 18910999 (Version 1)
Quarter: 2021Q1

REPORT INFORMATION
  Report Type: Spontaneous
  Country: DE (occurrence: DE)
  Receive Date: 20210218
  Receipt Date: 20210218
  Transmission Date: 20210420
  Serious: Yes (Hospitalization)
  Sender: FDA-Public Use
  Company Number: DE-009507513-2102DEU004009

PATIENT
  Sex: Female
  Weight: 100 kg

DRUGS (19)
  1. CEFUROXIME. [Concomitant]
     Active Substance: CEFUROXIME
     Indication: ANTIBIOTIC PROPHYLAXIS
     Dosage: 3 DOSAGE FORM, QD (1 DF, TID)
     Route: 065
     Dates: start: 20110902, end: 20110907
  2. XARELTO [Concomitant]
     Active Substance: RIVAROXABAN
     Indication: PROPHYLAXIS
     Dosage: UNK UNK, QD
     Route: 065
     Dates: start: 201109, end: 201109
  3. CLEXANE (ENOXAPARIN SODIUM) [Concomitant]
     Active Substance: ENOXAPARIN SODIUM
     Dosage: 40 MILLIGRAM, QD (40 MG, QD)
     Route: 058
     Dates: start: 201109
  4. DOXEPIN HYDROCHLORIDE. [Suspect]
     Active Substance: DOXEPIN HYDROCHLORIDE
     Indication: PRODUCT USED FOR UNKNOWN INDICATION
     Dosage: UNK
     Route: 065
  5. RANITIDINE. [Suspect]
     Active Substance: RANITIDINE
     Indication: HIATUS HERNIA
  6. NOVALGIN (DIPYRONE) [Suspect]
     Active Substance: DIPYRONE
     Indication: ANALGESIC THERAPY
     Dosage: 2 GRAM, QD (2 G, QD)
     Route: 065
     Dates: start: 2011, end: 2011
  7. CLEXANE (ENOXAPARIN SODIUM) [Concomitant]
     Active Substance: ENOXAPARIN SODIUM
     Indication: PRODUCT USED FOR UNKNOWN INDICATION
     Dosage: 1 DOSAGE FORM, QD (1 X 20, QD (EVENING))
     Route: 058
     Dates: start: 201103
  8. RANITIDINE. [Suspect]
     Active Substance: RANITIDINE
     Indication: CHRONIC GASTRITIS
  9. NOVALGIN (DIPYRONE) [Suspect]
     Active Substance: DIPYRONE
     Dosage: 1500 MILLIGRAM, QD (1 X 500 MG, TID (MORNING, NOON, NIGHT))
     Route: 065
     Dates: start: 2011, end: 2011
  10. TILIDIN N [Suspect]
     Active Substance: NALOXONE HYDROCHLORIDE\TILIDINE HYDROCHLORIDE
     Indication: ARTHRALGIA
     Dosage: 2 DOSAGE FORM, QD (1 DF, BID)
     Route: 065
  11. NOVALGIN (DIPYRONE) [Suspect]
     Active Substance: DIPYRONE
     Indication: PAIN
     Dosage: UNK
     Route: 065
     Dates: start: 200607
  12. DULOXETINE HYDROCHLORIDE. [Suspect]
     Active Substance: DULOXETINE HYDROCHLORIDE
     Indication: PAIN
     Dosage: 60 MILLIGRAM, QD (60 MG, QD (EVENING))
     Route: 065
     Dates: end: 201010
  13. DULOXETINE HYDROCHLORIDE. [Suspect]
     Active Substance: DULOXETINE HYDROCHLORIDE
     Indication: FIBROMYALGIA
  14. CLEXANE (ENOXAPARIN SODIUM) [Concomitant]
     Active Substance: ENOXAPARIN SODIUM
     Dosage: 40 MILLIGRAM, QD (40 MG, QD)
     Route: 058
     Dates: start: 201107
  15. MIRTAZAPINE. [Suspect]
     Active Substance: MIRTAZAPINE
     Indication: PRODUCT USED FOR UNKNOWN INDICATION
     Dosage: 15 MILLIGRAM, QD (15 MG, QD)
     Route: 065
  16. RANITIDINE. [Suspect]
     Active Substance: RANITIDINE
     Indication: GASTROOESOPHAGEAL REFLUX DISEASE
     Dosage: 300 MG, UNKNOWN (FREQUENCY NOT REPORTED)
     Route: 065
     Dates: start: 1999
  17. NOVALGIN (DIPYRONE) [Suspect]
     Active Substance: DIPYRONE
     Dosage: 2000 MILLIGRAM, QD (2 X 500 MG, QID)
     Route: 065
     Dates: start: 201109, end: 201109
  18. KATADOLON [Suspect]
     Active Substance: FLUPIRTINE
     Indication: PRODUCT USED FOR UNKNOWN INDICATION
     Dosage: UNK, QD (DOSE NOT REPORTED)
     Route: 065
  19. VALORON (CLONIXIN LYSINE) [Concomitant]
     Indication: ANALGESIC THERAPY
     Dosage: 2 DOSAGE FORM, QD (1 DF, BID)
     Route: 065
     Dates: start: 201109, end: 201110

REACTIONS (22)
  - Defaecation disorder [Unknown]
  - Depression [Unknown]
  - Injury [Unknown]
  - Meniscus injury [Unknown]
  - Osteosclerosis [Unknown]
  - Arthralgia [Unknown]
  - Pain in extremity [Recovering/Resolving]
  - Constipation [Unknown]
  - Osteonecrosis [Unknown]
  - Fall [Recovering/Resolving]
  - Pain [Unknown]
  - Humerus fracture [Recovering/Resolving]
  - Nail avulsion [Unknown]
  - Paranasal sinus inflammation [Unknown]
  - Myalgia [Unknown]
  - Joint effusion [Unknown]
  - Osteoarthritis [Unknown]
  - Hot flush [Unknown]
  - Rotator cuff syndrome [Recovered/Resolved]
  - Nocturia [Unknown]
  - Sleep disorder [Unknown]
  - Gastrointestinal infection [Unknown]

NARRATIVE: CASE EVENT DATE: 2011
